FAERS Safety Report 24788425 (Version 1)
Quarter: 2024Q4

REPORT INFORMATION
  Report Type: Spontaneous
  Country: US (occurrence: US)
  Receive Date: 20241230
  Receipt Date: 20241230
  Transmission Date: 20250115
  Serious: Yes (Life-Threatening, Hospitalization)
  Sender: MYLAN
  Company Number: US-MYLANLABS-2024M1115135

PATIENT
  Age: 55 Year
  Sex: Female

DRUGS (4)
  1. LEVOTHYROXINE [Suspect]
     Active Substance: LEVOTHYROXINE
     Indication: Product used for unknown indication
     Dosage: UNK^; TOOK BOTTLE OF LEVOTHYROXINE SODIUM [LEVOTHYROXINE], WHICH CONTAINED A 3 MONTHS SUPPLY
     Route: 065
  2. AMIODARONE [Suspect]
     Active Substance: AMIODARONE
     Indication: Ventricular fibrillation
     Dosage: UNK; DRIP
     Route: 065
  3. AMIODARONE [Suspect]
     Active Substance: AMIODARONE
     Indication: Cardiac arrest
  4. HEPARIN [Concomitant]
     Active Substance: HEPARIN SODIUM
     Indication: Anticoagulant therapy
     Dosage: UNK
     Route: 065

REACTIONS (6)
  - Cardiac arrest [Unknown]
  - Ventricular fibrillation [Unknown]
  - Thyrotoxic crisis [Unknown]
  - Hyperthyroidism [Unknown]
  - Intentional overdose [Unknown]
  - Drug ineffective [Unknown]
